FAERS Safety Report 20921487 (Version 1)
Quarter: 2022Q2

REPORT INFORMATION
  Report Type: Spontaneous
  Country: BR (occurrence: BR)
  Receive Date: 20220606
  Receipt Date: 20220606
  Transmission Date: 20220721
  Serious: Yes (Other)
  Sender: FDA-Public Use
  Company Number: BR-SCALL-2022-BR-000035

PATIENT
  Sex: Male

DRUGS (1)
  1. DUTASTERIDE\TAMSULOSIN HYDROCHLORIDE [Suspect]
     Active Substance: DUTASTERIDE\TAMSULOSIN HYDROCHLORIDE
     Indication: Prostatic disorder
     Dosage: 0.5 MG, QD, 1 CAPSULE PER DAY
     Dates: start: 20220409, end: 20220429

REACTIONS (13)
  - Urinary retention [Recovered/Resolved]
  - Visual impairment [Unknown]
  - Confusional state [Unknown]
  - Malaise [Unknown]
  - Drug ineffective [Unknown]
  - Dyspnoea [Unknown]
  - Dizziness [Unknown]
  - Vision blurred [Unknown]
  - Dry throat [Unknown]
  - Urethritis noninfective [Unknown]
  - Condition aggravated [Unknown]
  - Hypotension [Unknown]
  - Gastric disorder [Unknown]

NARRATIVE: CASE EVENT DATE: 20220101
